FAERS Safety Report 7938267-5 (Version None)
Quarter: 2011Q4

REPORT INFORMATION
  Report Type: 
  Country: None (occurrence: None)
  Receive Date: 20111123
  Receipt Date: 20111118
  Transmission Date: 20120403
  Serious: Yes (Hospitalization)
  Sender: FDA-Public Use
  Company Number: US-B.I. PHARMACEUTICALS,INC./RIDGEFIELD-2011-BP-22195BP

PATIENT
  Sex: Female
  Weight: 60 kg

DRUGS (14)
  1. PRADAXA [Suspect]
     Indication: CEREBROVASCULAR ACCIDENT PROPHYLAXIS
     Dosage: 150 MG
     Route: 048
     Dates: start: 20110301, end: 20110801
  2. LEVOTHYROXINE SODIUM [Concomitant]
  3. METOPROLOL TARTRATE [Concomitant]
  4. SYNTHROID [Concomitant]
     Indication: HYPOTHYROIDISM
     Route: 048
  5. VITAMIN E [Concomitant]
  6. INSULIN [Concomitant]
     Indication: TYPE 1 DIABETES MELLITUS
     Route: 058
     Dates: start: 19790101
  7. GABAPENTIN [Concomitant]
  8. XALATAN [Concomitant]
  9. VITAMIN B COMPLEX CAP [Concomitant]
  10. MULTI-VITAMIN [Concomitant]
  11. HUMALOG [Concomitant]
  12. AMLODIPINE BESYLATE [Concomitant]
  13. TRAMADOL HCL [Concomitant]
  14. BONIVA [Concomitant]

REACTIONS (10)
  - TEMPERATURE DIFFERENCE OF EXTREMITIES [None]
  - SENSATION OF BLOOD FLOW [None]
  - RENAL DISORDER [None]
  - CHILLS [None]
  - GASTROENTERITIS [None]
  - ASTHENIA [None]
  - ABDOMINAL PAIN UPPER [None]
  - VOMITING [None]
  - BLADDER DISORDER [None]
  - DIARRHOEA [None]
